FAERS Safety Report 19289749 (Version 1)
Quarter: 2021Q2

REPORT INFORMATION
  Report Type: Spontaneous
  Country: GB (occurrence: GB)
  Receive Date: 20210522
  Receipt Date: 20210522
  Transmission Date: 20210717
  Serious: Yes (Other)
  Sender: FDA-Public Use
  Company Number: GB-ORGANON-O2105GBR001505

PATIENT
  Age: 35 Year
  Sex: Male
  Weight: 63.5 kg

DRUGS (3)
  1. FINASTERIDE. [Suspect]
     Active Substance: FINASTERIDE
     Dosage: 1 MILLIGRAM PER DAY
     Route: 048
     Dates: start: 20210413, end: 20210514
  2. FINASTERIDE. [Suspect]
     Active Substance: FINASTERIDE
     Indication: ILL-DEFINED DISORDER
     Dosage: 1 MILLIGRAM PER DAY
     Route: 048
     Dates: start: 20210413, end: 20210514
  3. MINOXIDIL. [Concomitant]
     Active Substance: MINOXIDIL
     Indication: ILL-DEFINED DISORDER
     Dosage: UNK

REACTIONS (5)
  - Anxiety [Not Recovered/Not Resolved]
  - Fatigue [Not Recovered/Not Resolved]
  - Insomnia [Not Recovered/Not Resolved]
  - Fatigue [Not Recovered/Not Resolved]
  - Nerve injury [Not Recovered/Not Resolved]

NARRATIVE: CASE EVENT DATE: 20210514
